FAERS Safety Report 8903076 (Version 1)
Quarter: 2012Q4

REPORT INFORMATION
  Report Type: 
  Country: IE (occurrence: IE)
  Receive Date: 20121113
  Receipt Date: 20121113
  Transmission Date: 20130627
  Serious: Yes (Other)
  Sender: FDA-Public Use
  Company Number: IE-MERCK-1211IRL004140

PATIENT
  Sex: Male

DRUGS (4)
  1. SYCREST [Suspect]
     Indication: BIPOLAR DISORDER
     Dosage: 5 mg, bid
     Route: 060
     Dates: start: 20121105, end: 20121106
  2. HALOPERIDOL [Concomitant]
     Indication: BIPOLAR DISORDER
     Dosage: 30 mg, UNK
  3. LITHIUM [Concomitant]
     Indication: BIPOLAR DISORDER
     Dosage: 800 mg, UNK
  4. LYRICA [Concomitant]
     Dosage: 150 UNK, bid

REACTIONS (3)
  - Respiratory rate decreased [Unknown]
  - Heart rate decreased [Unknown]
  - Blood pressure decreased [Unknown]
